FAERS Safety Report 5627712-6 (Version None)
Quarter: 2008Q1

REPORT INFORMATION
  Report Type: 
  Country: None (occurrence: None)
  Receive Date: 20080215
  Receipt Date: 20080212
  Transmission Date: 20080703
  Serious: Yes (Hospitalization)
  Sender: FDA-Public Use
  Company Number: US-BAYER-200813241NA

PATIENT
  Age: 62 Year
  Sex: Male
  Weight: 81 kg

DRUGS (5)
  1. CAMPATH [Suspect]
     Indication: CHRONIC LYMPHOCYTIC LEUKAEMIA
     Dosage: AS USED: 3 MG
     Route: 058
     Dates: end: 20080204
  2. CAMPATH [Suspect]
     Dosage: AS USED: 10 MG  UNIT DOSE: 10 MG
     Route: 058
     Dates: start: 20080201
  3. DECADRON [Concomitant]
     Dosage: AS USED: 20 MG
     Route: 042
  4. LEVAQUIN [Concomitant]
     Dosage: TOTAL DAILY DOSE: 500 MG
     Dates: start: 20080118
  5. BACTRIM DS [Concomitant]

REACTIONS (4)
  - INJECTION SITE CELLULITIS [None]
  - INJECTION SITE ERYTHEMA [None]
  - INJECTION SITE OEDEMA [None]
  - INJECTION SITE WARMTH [None]
